FAERS Safety Report 5330437-8 (Version None)
Quarter: 2007Q2

REPORT INFORMATION
  Report Type: 
  Country: None (occurrence: None)
  Receive Date: 20070521
  Receipt Date: 20070509
  Transmission Date: 20071010
  Serious: Yes (Other)
  Sender: FDA-Public Use
  Company Number: US-PFIZER INC-2007038216

PATIENT
  Sex: Female

DRUGS (6)
  1. CHANTIX [Suspect]
     Indication: EX-SMOKER
  2. LEXAPRO [Concomitant]
  3. ANTIHYPERTENSIVES [Concomitant]
  4. CHOLESTEROL [Concomitant]
  5. ATIVAN [Concomitant]
     Indication: ANXIETY
  6. ANALGESICS [Concomitant]

REACTIONS (3)
  - CONFUSIONAL STATE [None]
  - FALL [None]
  - MUSCULAR WEAKNESS [None]
